FAERS Safety Report 7368426-4 (Version None)
Quarter: 2011Q1

REPORT INFORMATION
  Report Type: 
  Country: None (occurrence: None)
  Receive Date: 20110323
  Receipt Date: 20110309
  Transmission Date: 20110831
  Serious: Yes (Other)
  Sender: FDA-Public Use
  Company Number: CA-JNJFOC-20110305453

PATIENT
  Sex: Male
  Weight: 100 kg

DRUGS (5)
  1. IVERMECTIN [Concomitant]
     Indication: STRONGYLOIDIASIS
     Dosage: TWICE/FOR 2 WEEKS
     Route: 048
  2. SOLU-CORTEF [Concomitant]
     Indication: PREMEDICATION
     Route: 042
  3. REMICADE [Suspect]
     Indication: PRODUCT USED FOR UNKNOWN INDICATION
     Route: 042
  4. NADOLOL [Concomitant]
     Route: 065
  5. IMURAN [Concomitant]
     Route: 065

REACTIONS (2)
  - LIVER FUNCTION TEST ABNORMAL [None]
  - VARICES OESOPHAGEAL [None]
